FAERS Safety Report 5869484-6 (Version None)
Quarter: 2008Q3

REPORT INFORMATION
  Report Type: 
  Country: None (occurrence: None)
  Receive Date: 20080829
  Receipt Date: 20080819
  Transmission Date: 20090109
  Serious: Yes (Hospitalization)
  Sender: FDA-Public Use
  Company Number: 237350J08USA

PATIENT
  Age: 62 Year
  Sex: Female
  Weight: 68.0396 kg

DRUGS (2)
  1. REBIF [Suspect]
     Indication: MULTIPLE SCLEROSIS
     Dosage: 44 MCG, 3 IN 1 WEEKS, SUBCUTANEOUS, NOT REPORTED, NOT REPORTED, NOT REPORTED
     Route: 058
     Dates: start: 20050318, end: 20080101
  2. REBIF [Suspect]
     Indication: MULTIPLE SCLEROSIS
     Dosage: 44 MCG, 3 IN 1 WEEKS, SUBCUTANEOUS, NOT REPORTED, NOT REPORTED, NOT REPORTED
     Route: 058
     Dates: start: 20080601

REACTIONS (3)
  - ANKLE FRACTURE [None]
  - FALL [None]
  - INCISION SITE INFECTION [None]
